FAERS Safety Report 5246762-5 (Version None)
Quarter: 2007Q1

REPORT INFORMATION
  Report Type: 
  Country: None (occurrence: None)
  Receive Date: 20070226
  Receipt Date: 20070214
  Transmission Date: 20070707
  Serious: Yes (Other)
  Sender: FDA-Public Use
  Company Number: 2006CG01524

PATIENT
  Age: 21602 Day
  Sex: Male
  Weight: 92 kg

DRUGS (6)
  1. CRESTOR [Suspect]
     Indication: HYPERCHOLESTEROLAEMIA
     Route: 048
     Dates: start: 20051118, end: 20060729
  2. ALLOPURINOL SODIUM [Suspect]
     Indication: GOUT
     Dates: start: 19980101, end: 20060729
  3. METFORMIN [Suspect]
     Indication: DIABETES MELLITUS NON-INSULIN-DEPENDENT
     Dates: start: 20050901, end: 20060729
  4. COKENZEN [Concomitant]
     Dates: start: 20040301
  5. SECTRAL [Concomitant]
     Dates: start: 20040301
  6. KARDEGIC [Concomitant]
     Dates: start: 20040301

REACTIONS (6)
  - ABDOMINAL PAIN [None]
  - CYTOLYTIC HEPATITIS [None]
  - JAUNDICE CHOLESTATIC [None]
  - MYALGIA [None]
  - PYREXIA [None]
  - VOMITING [None]
